FAERS Safety Report 13591053 (Version 1)
Quarter: 2017Q2

REPORT INFORMATION
  Report Type: Spontaneous
  Country: US (occurrence: US)
  Receive Date: 20170528
  Receipt Date: 20170528
  Transmission Date: 20170830
  Serious: Yes (Hospitalization, Other)
  Sender: FDA-Public Use
  Company Number: None

PATIENT
  Age: 66 Year
  Sex: Male

DRUGS (1)
  1. RIVOROXIBAN, 15 MG BAYER [Suspect]
     Active Substance: RIVAROXABAN
     Indication: PULMONARY EMBOLISM
     Route: 048
     Dates: start: 20170522, end: 20170525

REACTIONS (4)
  - International normalised ratio increased [None]
  - Therapy cessation [None]
  - Activated partial thromboplastin time prolonged [None]
  - Prothrombin time prolonged [None]

NARRATIVE: CASE EVENT DATE: 20170522
